FAERS Safety Report 8124456-6 (Version None)
Quarter: 2012Q1

REPORT INFORMATION
  Report Type: 
  Country: None (occurrence: None)
  Receive Date: 20120209
  Receipt Date: 20120206
  Transmission Date: 20120608
  Serious: Yes (Other)
  Sender: FDA-Public Use
  Company Number: CO-BAYER-2012-011620

PATIENT
  Age: 68 Year
  Sex: Female

DRUGS (2)
  1. CIPRO XR [Suspect]
     Dosage: 1 UNK, UNK
     Dates: start: 20120101, end: 20120101
  2. CEFUROXIME [Concomitant]
     Dosage: UNK

REACTIONS (1)
  - URINARY TRACT INFECTION [None]
